FAERS Safety Report 4968548-9 (Version None)
Quarter: 2006Q2

REPORT INFORMATION
  Report Type: 
  Country: None (occurrence: None)
  Receive Date: 20060410
  Receipt Date: 20060330
  Transmission Date: 20061013
  Serious: Yes (Death, Hospitalization)
  Sender: FDA-Public Use
  Company Number: US-SANOFI-SYNTHELABO-A03200601934

PATIENT
  Sex: Male
  Weight: 96.14 kg

DRUGS (4)
  1. PLAVIX [Suspect]
     Indication: CEREBROVASCULAR DISORDER
     Route: 048
     Dates: start: 20030101
  2. TOPROL-XL [Concomitant]
     Route: 048
  3. DIOVAN HCT [Concomitant]
     Route: 048
  4. INSPRA [Concomitant]
     Route: 065

REACTIONS (7)
  - APHASIA [None]
  - CHEST PAIN [None]
  - CORONARY ARTERY OCCLUSION [None]
  - DYSPNOEA [None]
  - PERIPHERAL COLDNESS [None]
  - PULMONARY EMBOLISM [None]
  - RESPIRATORY ARREST [None]
